FAERS Safety Report 6925879-0 (Version None)
Quarter: 2010Q3

REPORT INFORMATION
  Report Type: 
  Country: None (occurrence: None)
  Receive Date: 20100813
  Receipt Date: 20100813
  Transmission Date: 20110219
  Serious: Yes (Hospitalization)
  Sender: FDA-Public Use
  Company Number: None

PATIENT
  Age: 63 Year
  Sex: Male
  Weight: 68 kg

DRUGS (2)
  1. PEMETREXED [Suspect]
     Indication: NON-SMALL CELL LUNG CANCER
     Dosage: IV
     Route: 042
     Dates: start: 20100408, end: 20100430
  2. BEVACIZUMAB [Suspect]
     Indication: NON-SMALL CELL LUNG CANCER
     Dosage: 1000 MG IV
     Route: 042
     Dates: start: 20100403, end: 20100403

REACTIONS (4)
  - ANAEMIA [None]
  - HEPATIC ENZYME INCREASED [None]
  - LEUKOCYTOCLASTIC VASCULITIS [None]
  - LEUKOPENIA [None]
